FAERS Safety Report 5761081-6 (Version None)
Quarter: 2008Q2

REPORT INFORMATION
  Report Type: 
  Country: None (occurrence: None)
  Receive Date: 20080606
  Receipt Date: 20080526
  Transmission Date: 20081010
  Serious: Yes (Hospitalization)
  Sender: FDA-Public Use
  Company Number: DE-JNJFOC-20080505358

PATIENT
  Sex: Male

DRUGS (3)
  1. ITRACOL HEXAL [Suspect]
     Indication: DRUG USE FOR UNKNOWN INDICATION
     Route: 065
  2. BEE VENOM [Interacting]
     Route: 065
  3. BEE VENOM [Interacting]
     Indication: ALLERGENIC DESENSITISATION PROCEDURE
     Route: 065

REACTIONS (3)
  - BREAST PAIN [None]
  - DERMATITIS ALLERGIC [None]
  - DRUG INTERACTION [None]
